FAERS Safety Report 17880499 (Version 1)
Quarter: 2020Q2

REPORT INFORMATION
  Report Type: Spontaneous
  Country: US (occurrence: US)
  Receive Date: 20200609
  Receipt Date: 20200609
  Transmission Date: 20200714
  Serious: Yes (Hospitalization)
  Sender: FDA-Public Use
  Company Number: None

PATIENT
  Age: 55 Year
  Sex: Female

DRUGS (1)
  1. IBRANCE [Suspect]
     Active Substance: PALBOCICLIB
     Indication: BREAST CANCER
     Dosage: 1 CAP QD PO 21 D ON - 7 D OFF
     Route: 048
     Dates: start: 20200318

REACTIONS (1)
  - Stomatitis [None]

NARRATIVE: CASE EVENT DATE: 20200601
